FAERS Safety Report 15546828 (Version 1)
Quarter: 2018Q4

REPORT INFORMATION
  Report Type: Spontaneous
  Country: US (occurrence: US)
  Receive Date: 20181024
  Receipt Date: 20181024
  Transmission Date: 20190205
  Serious: Yes (Hospitalization)
  Sender: FDA-Public Use
  Company Number: None

PATIENT
  Sex: Male

DRUGS (13)
  1. PREVALITE [Concomitant]
     Active Substance: CHOLESTYRAMINE
  2. LOPERAMIDE [Concomitant]
     Active Substance: LOPERAMIDE
  3. ACID REDUCER [Concomitant]
  4. PREDNISONE. [Concomitant]
     Active Substance: PREDNISONE
  5. POTASSIUM [Concomitant]
     Active Substance: POTASSIUM
  6. MULTIVITAMIN [Concomitant]
     Active Substance: VITAMINS
  7. XIFAXAN [Concomitant]
     Active Substance: RIFAXIMIN
  8. IRON [Concomitant]
     Active Substance: IRON
  9. CALC ACETATE [Concomitant]
     Active Substance: CALCIUM ACETATE
  10. URSODIOL. [Concomitant]
     Active Substance: URSODIOL
  11. HUMIRA [Suspect]
     Active Substance: ADALIMUMAB
     Indication: CROHN^S DISEASE
     Dosage: ?          OTHER FREQUENCY:ONCE A WEEK;?
     Route: 058
     Dates: start: 20170725
  12. BUDESONIDE. [Concomitant]
     Active Substance: BUDESONIDE
  13. CRUSH VIT [Concomitant]

REACTIONS (3)
  - Abdominal pain upper [None]
  - Haematochezia [None]
  - Condition aggravated [None]
